FAERS Safety Report 19084010 (Version 2)
Quarter: 2021Q2

REPORT INFORMATION
  Report Type: Report from Study
  Country: US (occurrence: US)
  Receive Date: 20210401
  Receipt Date: 20210416
  Transmission Date: 20210717
  Serious: Yes (Disabling, Other)
  Sender: FDA-Public Use
  Company Number: US-SHIRE-US202008121

PATIENT
  Sex: Female

DRUGS (1)
  1. CUVITRU [Suspect]
     Active Substance: HUMAN IMMUNOGLOBULIN G
     Indication: PRIMARY IMMUNODEFICIENCY SYNDROME
     Route: 065

REACTIONS (10)
  - Feeling abnormal [Unknown]
  - Pain [Unknown]
  - Deafness unilateral [Unknown]
  - Intervertebral disc protrusion [Unknown]
  - Seasonal allergy [Unknown]
  - Plantar fasciitis [Unknown]
  - Injection site mass [Unknown]
  - Asthma [Unknown]
  - Musculoskeletal discomfort [Unknown]
  - Sitting disability [Unknown]
